FAERS Safety Report 7394470-7 (Version None)
Quarter: 2011Q2

REPORT INFORMATION
  Report Type: 
  Country: None (occurrence: None)
  Receive Date: 20110405
  Receipt Date: 20110331
  Transmission Date: 20111010
  Serious: Yes (Other)
  Sender: FDA-Public Use
  Company Number: US-PFIZER INC-2011072288

PATIENT
  Sex: Female
  Weight: 61.224 kg

DRUGS (2)
  1. ADVIL CONGESTION RELIEF [Suspect]
     Indication: RESPIRATORY TRACT CONGESTION
     Dosage: 200 MG, 2X/DAY
     Route: 048
     Dates: start: 20110301, end: 20110301
  2. ADVIL CONGESTION RELIEF [Suspect]
     Indication: NASOPHARYNGITIS

REACTIONS (1)
  - HEPATIC ENZYME INCREASED [None]
